FAERS Safety Report 9854040 (Version 2)
Quarter: 2014Q4

REPORT INFORMATION
  Report Type: Spontaneous
  Country: US (occurrence: US)
  Receive Date: 20140129
  Receipt Date: 20141006
  Transmission Date: 20150529
  Serious: No
  Sender: FDA-Public Use
  Company Number: US-009507513-1401USA013566

PATIENT
  Sex: Female

DRUGS (1)
  1. NUVARING [Suspect]
     Active Substance: ETHINYL ESTRADIOL\ETONOGESTREL
     Dosage: UNK
     Route: 067

REACTIONS (14)
  - Thrombophlebitis superficial [Unknown]
  - Endometriosis [Unknown]
  - Uterine dilation and curettage [Unknown]
  - Ovarian cyst ruptured [Unknown]
  - Laser therapy [Unknown]
  - Deep vein thrombosis [Unknown]
  - Peripheral venous disease [Not Recovered/Not Resolved]
  - Myomectomy [Unknown]
  - Endovenous ablation [Unknown]
  - Uterine leiomyoma [Unknown]
  - Uterine dilation and curettage [Unknown]
  - Hysterectomy [Unknown]
  - Myomectomy [Unknown]
  - Thrombophlebitis superficial [Unknown]

NARRATIVE: CASE EVENT DATE: 2002
